FAERS Safety Report 9013925 (Version 1)
Quarter: 2013Q1

REPORT INFORMATION
  Report Type: Spontaneous
  Country: US (occurrence: US)
  Receive Date: 20130115
  Receipt Date: 20130115
  Transmission Date: 20140127
  Serious: No
  Sender: FDA-Public Use
  Company Number: US-B.I. PHARMACEUTICALS,INC./RIDGEFIELD-2013-BI-00410BP

PATIENT
  Sex: Male
  Weight: 96 kg

DRUGS (8)
  1. PRADAXA [Suspect]
     Indication: ATRIAL FIBRILLATION
     Dosage: 150 MG
     Route: 048
     Dates: start: 2010
  2. HYDROCHLOROTHIAZIDE [Concomitant]
     Indication: HYPERTENSION
     Dosage: 12.5 MG
     Route: 048
  3. ALLOPURINOL [Concomitant]
     Indication: BLOOD URIC ACID INCREASED
     Dosage: 100 MG
     Route: 048
  4. ASPIRIN [Concomitant]
     Dosage: 81 MG
     Route: 048
  5. EXTRA STRENGTH TYLENOL [Concomitant]
     Indication: NECK PAIN
     Dosage: 1000 MG
     Route: 048
  6. METOPROLOL [Concomitant]
     Indication: ATRIAL FIBRILLATION
     Dosage: 12.5 MG
     Route: 048
  7. AMLODIPINE-BENAZEPRIL [Concomitant]
     Indication: HYPERTENSION
     Route: 048
  8. CENTRUM SILVER [Concomitant]
     Dosage: (TABLET) STRENGTH: 1 TABLET; DAILY DOSE: 1 TABLET
     Route: 048

REACTIONS (1)
  - Dysgeusia [Not Recovered/Not Resolved]
